FAERS Safety Report 13325199 (Version 3)
Quarter: 2017Q2

REPORT INFORMATION
  Report Type: Spontaneous
  Country: US (occurrence: US)
  Receive Date: 20170310
  Receipt Date: 20170613
  Transmission Date: 20170830
  Serious: Yes (Death, Hospitalization)
  Sender: FDA-Public Use
  Company Number: US-ACTELION-A-NJ2017-150668

PATIENT
  Age: 76 Year
  Sex: Female

DRUGS (10)
  1. TYVASO [Concomitant]
     Active Substance: TREPROSTINIL
  2. THERA-M [Concomitant]
  3. ADCIRCA [Concomitant]
     Active Substance: TADALAFIL
  4. FERROUS SULFATE. [Concomitant]
     Active Substance: FERROUS SULFATE
  5. OMEPRAZOLE. [Concomitant]
     Active Substance: OMEPRAZOLE
  6. CALCITRIOL. [Concomitant]
     Active Substance: CALCITRIOL
  7. FUROSEMIDE. [Concomitant]
     Active Substance: FUROSEMIDE
  8. LEVOTHYROXINE. [Concomitant]
     Active Substance: LEVOTHYROXINE
  9. OPSUMIT [Suspect]
     Active Substance: MACITENTAN
     Indication: PULMONARY ARTERIAL HYPERTENSION
     Dosage: 10 MG, QD
     Route: 048
     Dates: start: 20160317, end: 20170425
  10. INCRUSE ELLIPTA [Concomitant]
     Active Substance: UMECLIDINIUM BROMIDE

REACTIONS (6)
  - Amnesia [Unknown]
  - Cardiac failure congestive [Fatal]
  - Fluid retention [Recovering/Resolving]
  - Urinary tract infection [Recovering/Resolving]
  - Confusional state [Recovering/Resolving]
  - Blood glucose decreased [Recovering/Resolving]
